FAERS Safety Report 4620194-2 (Version None)
Quarter: 2005Q1

REPORT INFORMATION
  Report Type: 
  Country: None (occurrence: None)
  Receive Date: 20050323
  Receipt Date: 20050323
  Transmission Date: 20050727
  Serious: Yes (Life-Threatening)
  Sender: FDA-Public Use
  Company Number: None

PATIENT
  Age: 61 Year
  Sex: Male
  Weight: 100.6985 kg

DRUGS (1)
  1. KALETRA [Suspect]
     Indication: PROPHYLAXIS
     Dosage: THREE(3) CAPS PO BID
     Route: 048
     Dates: start: 20050314, end: 20050316

REACTIONS (3)
  - BLOOD PRESSURE DIASTOLIC DECREASED [None]
  - DIZZINESS [None]
  - HEART RATE DECREASED [None]
